FAERS Safety Report 8102911-2 (Version None)
Quarter: 2012Q1

REPORT INFORMATION
  Report Type: 
  Country: None (occurrence: None)
  Receive Date: 20120201
  Receipt Date: 20120123
  Transmission Date: 20120608
  Serious: Yes (Death, Hospitalization, Other)
  Sender: FDA-Public Use
  Company Number: US-JNJFOC-20111104642

PATIENT
  Sex: Male
  Weight: 83.92 kg

DRUGS (9)
  1. DURAGESIC-100 [Suspect]
     Route: 062
  2. FENTANYL-100 [Suspect]
     Route: 062
  3. OXYCONTIN [Concomitant]
     Indication: SURGERY
     Route: 048
  4. OXYCODONE HCL [Concomitant]
     Indication: SURGERY
     Route: 048
  5. DURAGESIC-100 [Suspect]
     Route: 062
  6. FENTANYL-100 [Suspect]
     Indication: SURGERY
     Route: 062
     Dates: end: 20110226
  7. DURAGESIC-100 [Suspect]
     Indication: SURGERY
     Route: 062
  8. DURAGESIC-100 [Suspect]
     Dosage: 2 X 1 100 UG/HR PATCH
     Route: 062
     Dates: end: 20110201
  9. DURAGESIC-100 [Suspect]
     Route: 062

REACTIONS (9)
  - CARDIAC DISORDER [None]
  - INTRACRANIAL HAEMATOMA [None]
  - WITHDRAWAL SYNDROME [None]
  - AGITATION [None]
  - PRODUCT QUALITY ISSUE [None]
  - CEREBROVASCULAR ACCIDENT [None]
  - INCORRECT DOSE ADMINISTERED [None]
  - ECHOCARDIOGRAM ABNORMAL [None]
  - BLOOD GLUCOSE DECREASED [None]
